FAERS Safety Report 19803146 (Version 1)
Quarter: 2021Q3

REPORT INFORMATION
  Report Type: Spontaneous
  Country: JP (occurrence: JP)
  Receive Date: 20210908
  Receipt Date: 20210908
  Transmission Date: 20211014
  Serious: Yes (Other)
  Sender: FDA-Public Use
  Company Number: JP-BRISTOL-MYERS SQUIBB COMPANY-BMS-2021-088567

PATIENT
  Age: 12 Year
  Sex: Female

DRUGS (2)
  1. SPRYCEL [Suspect]
     Active Substance: DASATINIB
     Indication: ACUTE LYMPHOCYTIC LEUKAEMIA
     Dosage: 60 MILLIGRAM, QD
     Route: 065
  2. SPRYCEL [Suspect]
     Active Substance: DASATINIB
     Dosage: 40 MILLIGRAM, QD
     Route: 065

REACTIONS (2)
  - Cytomegalovirus enteritis [Unknown]
  - Bronchopulmonary aspergillosis [Unknown]
